FAERS Safety Report 19047413 (Version 2)
Quarter: 2021Q3

REPORT INFORMATION
  Report Type: Report from Study
  Country: GE (occurrence: GE)
  Receive Date: 20210323
  Receipt Date: 20210709
  Transmission Date: 20211014
  Serious: Yes (Death)
  Sender: FDA-Public Use
  Company Number: GE-BAYER-2021-109682

PATIENT
  Age: 56 Year

DRUGS (3)
  1. CLOFAZIMINE [Suspect]
     Active Substance: CLOFAZIMINE
     Dosage: UNK
     Dates: start: 20150415
  2. MOXIFLOXACIN. [Suspect]
     Active Substance: MOXIFLOXACIN
     Indication: TUBERCULOSIS
     Dosage: 400 MG
     Route: 048
     Dates: start: 20150415, end: 20160318
  3. MOXIFLOXACIN. [Suspect]
     Active Substance: MOXIFLOXACIN
     Indication: TUBERCULOSIS
     Dosage: 400 UNK
     Route: 048
     Dates: start: 20160329, end: 20160411

REACTIONS (7)
  - Electrocardiogram QT prolonged [Fatal]
  - Blood creatinine increased [None]
  - Renal injury [Fatal]
  - Off label use [None]
  - Product use in unapproved indication [None]
  - Renal failure [Fatal]
  - Blood potassium decreased [None]
